FAERS Safety Report 9219107 (Version 1)
Quarter: 2013Q2

REPORT INFORMATION
  Report Type: Spontaneous
  Country: US (occurrence: None)
  Receive Date: 20130405
  Receipt Date: 20130405
  Transmission Date: 20140414
  Serious: Yes (Life-Threatening, Hospitalization)
  Sender: FDA-Public Use
  Company Number: None

PATIENT
  Age: 74 Year
  Sex: Male
  Weight: 155.1 kg

DRUGS (2)
  1. LISINOPRIL [Suspect]
     Indication: HYPERTENSION
     Route: 048
     Dates: start: 20050211, end: 20120924
  2. BUMETANIDE [Suspect]
     Indication: HYPERTENSION
     Route: 048

REACTIONS (4)
  - Dehydration [None]
  - Confusional state [None]
  - Lethargy [None]
  - Renal failure acute [None]
